FAERS Safety Report 5844731-5 (Version None)
Quarter: 2008Q3

REPORT INFORMATION
  Report Type: 
  Country: None (occurrence: None)
  Receive Date: 20080814
  Receipt Date: 20080804
  Transmission Date: 20090109
  Serious: Yes (Death, Congenital Anomaly)
  Sender: FDA-Public Use
  Company Number: FR-ABBOTT-08P-056-0444430-00

PATIENT
  Sex: Male

DRUGS (2)
  1. DEPAKENE [Suspect]
     Indication: DRUG EXPOSURE DURING PREGNANCY
     Route: 064
  2. GABAPENTIN [Suspect]
     Indication: DRUG EXPOSURE DURING PREGNANCY
     Route: 064

REACTIONS (11)
  - ABORTION INDUCED [None]
  - CONGENITAL DIAPHRAGMATIC HERNIA [None]
  - DRUG EXPOSURE DURING PREGNANCY [None]
  - DYSMORPHISM [None]
  - GENERALISED OEDEMA [None]
  - HYPERTELORISM OF ORBIT [None]
  - LIP DISORDER [None]
  - PLEURAL EFFUSION [None]
  - PULMONARY HYPOPLASIA [None]
  - PULMONARY MALFORMATION [None]
  - RENAL TUBULAR DISORDER [None]
